FAERS Safety Report 4378072-2 (Version None)
Quarter: 2004Q2

REPORT INFORMATION
  Report Type: 
  Country: None (occurrence: None)
  Receive Date: 20040616
  Receipt Date: 20040609
  Transmission Date: 20050107
  Serious: Yes (Hospitalization)
  Sender: FDA-Public Use
  Company Number: AR-BRISTOL-MYERS SQUIBB COMPANY-12611307

PATIENT
  Age: 59 Year
  Sex: Female
  Weight: 52 kg

DRUGS (6)
  1. CISPLATIN [Suspect]
     Indication: CERVIX CARCINOMA
     Dosage: THERAPY DATES: 26-NOV-2003 TO 02-MAR-2004
     Route: 042
     Dates: start: 20040302, end: 20040302
  2. GEMZAR [Suspect]
     Indication: CERVIX CARCINOMA
     Dosage: THERAPY DATES: 26-NOV-2003 TO 02-MAR-2004
     Route: 042
     Dates: start: 20040302, end: 20040302
  3. RADIATION THERAPY [Suspect]
     Indication: CERVIX CARCINOMA
     Dosage: 50 GY 1ST DOSE: 26NOV03
     Dates: start: 20040108, end: 20040108
  4. CIPROFLOXACIN [Concomitant]
     Indication: PROPHYLAXIS
     Dates: start: 20040327, end: 20040402
  5. PROPOXYPHENE [Concomitant]
     Indication: ANALGESIC THERAPY
     Dates: start: 20040320, end: 20040510
  6. DEXAMETHASONE [Concomitant]
     Indication: ANTIINFLAMMATORY THERAPY
     Dates: start: 20040327, end: 20040410

REACTIONS (1)
  - CYSTITIS [None]
